FAERS Safety Report 4871273-6 (Version None)
Quarter: 2005Q4

REPORT INFORMATION
  Report Type: 
  Country: None (occurrence: None)
  Receive Date: 20051229
  Receipt Date: 20051216
  Transmission Date: 20060501
  Serious: Yes (Hospitalization, Other)
  Sender: FDA-Public Use
  Company Number: 2005170063

PATIENT
  Age: 50 Year
  Sex: Male
  Weight: 83.9154 kg

DRUGS (3)
  1. VIAGRA [Suspect]
     Indication: ERECTILE DYSFUNCTION
     Dosage: 50 MG
     Dates: start: 20030101
  2. INSULIN [Concomitant]
  3. VALSARTAN [Concomitant]

REACTIONS (8)
  - APPENDIX DISORDER [None]
  - CYANOPSIA [None]
  - DIZZINESS [None]
  - FEELING HOT [None]
  - FEELING JITTERY [None]
  - HYPERTENSION [None]
  - NERVOUSNESS [None]
  - PAIN [None]
